FAERS Safety Report 18620042 (Version 1)
Quarter: 2020Q4

REPORT INFORMATION
  Report Type: Spontaneous
  Country: CA (occurrence: CA)
  Receive Date: 20201215
  Receipt Date: 20201215
  Transmission Date: 20210114
  Serious: Yes (Hospitalization, Other)
  Sender: FDA-Public Use
  Company Number: CA-BAYER-2020-269834

PATIENT
  Age: 67 Year
  Sex: Female

DRUGS (19)
  1. BREO ELLIPTA [Suspect]
     Active Substance: FLUTICASONE FUROATE\VILANTEROL TRIFENATATE
     Dosage: 1 DF, QD
     Route: 045
  2. NITROGLYCERIN. [Suspect]
     Active Substance: NITROGLYCERIN
     Indication: PRODUCT USE IN UNAPPROVED INDICATION
  3. ZOPICLONE [Suspect]
     Active Substance: ZOPICLONE
     Indication: PRODUCT USE IN UNAPPROVED INDICATION
     Dosage: 1 DF, QD
     Route: 048
  4. PREDNISONE. [Suspect]
     Active Substance: PREDNISONE
     Indication: PRODUCT USE IN UNAPPROVED INDICATION
  5. SALBUTAMOL SULFATE [Suspect]
     Active Substance: ALBUTEROL SULFATE
     Indication: ASTHMA
  6. SENNOSIDES. [Suspect]
     Active Substance: SENNOSIDES
     Indication: PRODUCT USE IN UNAPPROVED INDICATION
  7. ACETAMINOPHEN. [Suspect]
     Active Substance: ACETAMINOPHEN
     Indication: PRODUCT USE IN UNAPPROVED INDICATION
     Dosage: 2 DF, 6ID
     Route: 048
  8. MACROGOL [Suspect]
     Active Substance: POLYETHYLENE GLYCOLS
     Indication: PRODUCT USE IN UNAPPROVED INDICATION
  9. DIMENHYDRINATE. [Suspect]
     Active Substance: DIMENHYDRINATE
     Indication: PRODUCT USE IN UNAPPROVED INDICATION
     Dosage: 1 DF, BID
  10. GLYCEROL [Suspect]
     Active Substance: GLYCERIN
     Indication: PRODUCT USE IN UNAPPROVED INDICATION
  11. GLYCOPYRRONIUM BROMIDE [Suspect]
     Active Substance: GLYCOPYRRONIUM
     Indication: PRODUCT USE IN UNAPPROVED INDICATION
     Dosage: 50 MG
  12. ALEVE [Suspect]
     Active Substance: NAPROXEN SODIUM
  13. LACTULOSE. [Suspect]
     Active Substance: LACTULOSE
     Indication: PRODUCT USE IN UNAPPROVED INDICATION
     Dosage: 15 ML, BID
  14. LORAZEPAM. [Suspect]
     Active Substance: LORAZEPAM
     Indication: PRODUCT USE IN UNAPPROVED INDICATION
     Dosage: 1 DF
  15. SULFAMETHOXAZOLE [Suspect]
     Active Substance: SULFAMETHOXAZOLE
     Indication: PRODUCT USE IN UNAPPROVED INDICATION
  16. HYDROMORPHONE [Suspect]
     Active Substance: HYDROMORPHONE
     Indication: PRODUCT USE IN UNAPPROVED INDICATION
     Dosage: 1 DF, 6ID
  17. SECOBARBITAL [Suspect]
     Active Substance: SECOBARBITAL
     Indication: PRODUCT USE IN UNAPPROVED INDICATION
     Dosage: UNK UNK, TID
  18. SYMBICORT [Suspect]
     Active Substance: BUDESONIDE\FORMOTEROL FUMARATE DIHYDRATE
     Indication: PRODUCT USE IN UNAPPROVED INDICATION
     Dosage: 2 DF, BID
  19. TUDORZA GENUAIR [Suspect]
     Active Substance: ACLIDINIUM BROMIDE
     Indication: PRODUCT USE IN UNAPPROVED INDICATION
     Dosage: 1 DF, BID

REACTIONS (22)
  - Asthma [None]
  - Fall [None]
  - Respiratory distress [None]
  - Respiratory tract congestion [None]
  - Head injury [None]
  - Sleep disorder due to a general medical condition [None]
  - Cellulitis [None]
  - Chronic obstructive pulmonary disease [None]
  - Sputum discoloured [None]
  - Loss of personal independence in daily activities [None]
  - Pyrexia [None]
  - Rash [None]
  - Skin disorder [None]
  - Somnolence [None]
  - Aortic arteriosclerosis [None]
  - Bilevel positive airway pressure [None]
  - Chest pain [None]
  - Dyspnoea [None]
  - Neurological symptom [None]
  - Therapeutic product effect incomplete [None]
  - Arteriosclerosis coronary artery [None]
  - Wheezing [None]
